FAERS Safety Report 16826411 (Version 1)
Quarter: 2019Q3

REPORT INFORMATION
  Report Type: Spontaneous
  Country: JP (occurrence: JP)
  Receive Date: 20190919
  Receipt Date: 20190919
  Transmission Date: 20191005
  Serious: Yes (Other)
  Sender: FDA-Public Use
  Company Number: JP-PFIZER INC-2019396245

PATIENT
  Age: 6 Year
  Sex: Male

DRUGS (1)
  1. GABAPEN [Suspect]
     Active Substance: GABAPENTIN
     Dosage: UNK
     Route: 048

REACTIONS (5)
  - Neuroleptic malignant syndrome [Unknown]
  - Pyrexia [Unknown]
  - Muscle tightness [Unknown]
  - Blood creatine phosphokinase decreased [Unknown]
  - White blood cell count decreased [Unknown]
